FAERS Safety Report 24334521 (Version 1)
Quarter: 2024Q3

REPORT INFORMATION
  Report Type: Spontaneous
  Country: FR (occurrence: FR)
  Receive Date: 20240918
  Receipt Date: 20240918
  Transmission Date: 20241016
  Serious: Yes (Hospitalization)
  Sender: MYLAN
  Company Number: None

PATIENT
  Age: 24 Year
  Sex: Female
  Weight: 55 kg

DRUGS (2)
  1. ACETAMINOPHEN [Suspect]
     Active Substance: ACETAMINOPHEN
     Indication: Ear, nose and throat infection
     Dosage: UNK
     Route: 048
     Dates: start: 20210727
  2. BACTRIM [Suspect]
     Active Substance: SULFAMETHOXAZOLE\TRIMETHOPRIM
     Indication: Cystitis
     Dosage: UNK
     Route: 048
     Dates: start: 2021

REACTIONS (1)
  - Fixed eruption [Recovered/Resolved]

NARRATIVE: CASE EVENT DATE: 20210807
